FAERS Safety Report 4504532-7 (Version None)
Quarter: 2004Q4

REPORT INFORMATION
  Report Type: 
  Country: None (occurrence: None)
  Receive Date: 20041116
  Receipt Date: 20040629
  Transmission Date: 20050328
  Serious: Yes (Life-Threatening, Hospitalization)
  Sender: FDA-Public Use
  Company Number: F01200401646

PATIENT
  Age: 71 Year
  Sex: Female

DRUGS (5)
  1. OXALIPLATIN - SOLUTION - 130 MG/M2 [Suspect]
     Indication: COLORECTAL CANCER METASTATIC
     Dosage: 209 MG Q3W INTRAVENOUS NOS
     Route: 042
     Dates: start: 20040614, end: 20040614
  2. CAPECITABINE [Suspect]
     Indication: COLORECTAL CANCER METASTATIC
     Dosage: 7.5 MG/KG INTRAVENOUS NOS
     Route: 042
     Dates: start: 20040614, end: 20040614
  3. BEVACIZUMAB - SOLUTION - 7.5 MG/KG [Suspect]
     Indication: COLORECTAL CANCER METASTATIC
     Dosage: INTRAVENOUS NOS
     Route: 042
     Dates: start: 20040614, end: 20040614
  4. TERTENSIF (INDAPAMIDE) [Concomitant]
  5. LIPEMOL (PRAVASTATIN SODIUM) [Concomitant]

REACTIONS (5)
  - ATRIAL FIBRILLATION [None]
  - HEMIPARESIS [None]
  - HYPERTENSIVE CRISIS [None]
  - HYPOTENSION [None]
  - PLEURAL EFFUSION [None]
